FAERS Safety Report 9095421 (Version 1)
Quarter: 2013Q1

REPORT INFORMATION
  Report Type: Spontaneous
  Country: US (occurrence: None)
  Receive Date: 20130123
  Receipt Date: 20130123
  Transmission Date: 20140127
  Serious: Yes (Other)
  Sender: FDA-Public Use
  Company Number: US-1196149

PATIENT
  Age: 66 Year
  Sex: Male

DRUGS (1)
  1. CYCLOGYL [Suspect]
     Dosage: 1 GTT BID OS OPHTHALMIC

REACTIONS (1)
  - Grand mal convulsion [None]
